FAERS Safety Report 17823667 (Version 2)
Quarter: 2020Q2

REPORT INFORMATION
  Report Type: Spontaneous
  Country: US (occurrence: US)
  Receive Date: 20200526
  Receipt Date: 20200529
  Transmission Date: 20200714
  Serious: No
  Sender: FDA-Public Use
  Company Number: US-PFIZER INC-2020203547

PATIENT
  Age: 59 Year
  Sex: Female

DRUGS (1)
  1. XELJANZ XR [Suspect]
     Active Substance: TOFACITINIB CITRATE
     Indication: RHEUMATOID ARTHRITIS
     Dosage: 11 MG, 1X/DAY
     Route: 048
     Dates: start: 202003

REACTIONS (6)
  - Flatulence [Unknown]
  - Abdominal pain [Unknown]
  - Drug ineffective [Unknown]
  - Fatigue [Unknown]
  - Abdominal distension [Unknown]
  - Depression [Unknown]

NARRATIVE: CASE EVENT DATE: 2020
